FAERS Safety Report 24322110 (Version 1)
Quarter: 2024Q3

REPORT INFORMATION
  Report Type: Spontaneous
  Country: BE (occurrence: BE)
  Receive Date: 20240916
  Receipt Date: 20240916
  Transmission Date: 20241017
  Serious: Yes (Hospitalization, Other)
  Sender: ABBVIE
  Company Number: BE-ABBVIE-5920793

PATIENT
  Age: 53 Year
  Weight: 105 kg

DRUGS (7)
  1. RINVOQ [Suspect]
     Active Substance: UPADACITINIB
     Indication: Polyarthritis
     Route: 048
  2. OMEPRAZOLE [Concomitant]
     Active Substance: OMEPRAZOLE
     Indication: Product used for unknown indication
  3. CETIRIZINE [Concomitant]
     Active Substance: CETIRIZINE HYDROCHLORIDE
     Indication: Product used for unknown indication
     Dosage: TWO DAYS (MAX 1) AS NEEDED
  4. BISOPROLOL [Concomitant]
     Active Substance: BISOPROLOL\BISOPROLOL FUMARATE
     Indication: Product used for unknown indication
     Dosage: AT 08.00, 20.00
  5. FELODIPINE [Concomitant]
     Active Substance: FELODIPINE
     Indication: Product used for unknown indication
     Dosage: FELODIPINE RETARD, FREQUENCY TEXT: AT 8AM
  6. COZAAR [Concomitant]
     Active Substance: LOSARTAN POTASSIUM
     Indication: Product used for unknown indication
     Dosage: FREQUENCY TEXT: AT 8 AM
  7. MEDROL [Concomitant]
     Active Substance: METHYLPREDNISOLONE
     Indication: Product used for unknown indication
     Dosage: FORM STRENGTH: 8 MG

REACTIONS (13)
  - Pulmonary embolism [Unknown]
  - Overweight [Unknown]
  - Cardiac arrest [Unknown]
  - Post procedural haematoma [Unknown]
  - Thrombolysis [Unknown]
  - Right ventricular dilatation [Unknown]
  - Hypoventilation [Unknown]
  - Acquired diaphragmatic eventration [Unknown]
  - Deep vein thrombosis [Unknown]
  - Fall [Unknown]
  - Flail chest [Unknown]
  - Heart failure with preserved ejection fraction [Unknown]
  - Right ventricular dysfunction [Unknown]

NARRATIVE: CASE EVENT DATE: 20240101
